FAERS Safety Report 7809093-2 (Version None)
Quarter: 2011Q4

REPORT INFORMATION
  Report Type: 
  Country: None (occurrence: None)
  Receive Date: 20111012
  Receipt Date: 20110929
  Transmission Date: 20120403
  Serious: Yes (Hospitalization, Other)
  Sender: FDA-Public Use
  Company Number: IT-ELI_LILLY_AND_COMPANY-IT201110000131

PATIENT
  Sex: Female

DRUGS (3)
  1. FORTEO [Suspect]
  2. CORTISONE ACETATE [Concomitant]
  3. ACETAMINOPHEN [Concomitant]

REACTIONS (1)
  - HEPATIC FAILURE [None]
